FAERS Safety Report 19000196 (Version 1)
Quarter: 2021Q1

REPORT INFORMATION
  Report Type: Spontaneous
  Country: US (occurrence: US)
  Receive Date: 20210312
  Receipt Date: 20210312
  Transmission Date: 20210420
  Serious: Yes (Hospitalization)
  Sender: FDA-Public Use
  Company Number: US-TOPROL-2021000035

PATIENT
  Age: 49 Year
  Sex: Male
  Weight: 116 kg

DRUGS (3)
  1. ASPIRIN. [Concomitant]
     Active Substance: ASPIRIN
     Indication: PRODUCT USED FOR UNKNOWN INDICATION
     Route: 065
  2. METOPROLOL. [Suspect]
     Active Substance: METOPROLOL
     Indication: ACUTE MYOCARDIAL INFARCTION
     Route: 048
     Dates: start: 202009, end: 202009
  3. BRILINTA [Suspect]
     Active Substance: TICAGRELOR
     Indication: ACUTE MYOCARDIAL INFARCTION
     Dosage: ONCE OR TWICE A DAY
     Route: 048
     Dates: start: 202009, end: 202009

REACTIONS (12)
  - Malaise [Unknown]
  - Off label use [Unknown]
  - Anxiety [Unknown]
  - Dry mouth [Unknown]
  - Oropharyngeal spasm [Unknown]
  - Depression [Unknown]
  - Hospitalisation [Recovered/Resolved]
  - Acute stress disorder [Unknown]
  - Fatigue [Unknown]
  - Constipation [Unknown]
  - Feeling cold [Unknown]
  - Blood disorder [Unknown]

NARRATIVE: CASE EVENT DATE: 202009
